FAERS Safety Report 10760760 (Version 1)
Quarter: 2015Q1

REPORT INFORMATION
  Report Type: Spontaneous
  Country: JP (occurrence: None)
  Receive Date: 20150202
  Receipt Date: 20150202
  Transmission Date: 20150721
  Serious: Yes (Hospitalization)
  Sender: FDA-Public Use
  Company Number: 2015FE00193

PATIENT
  Age: 86 Year
  Sex: Male

DRUGS (2)
  1. DECADRON /00016001/ (DEXAMETHASONE) [Concomitant]
  2. GONAX [Suspect]
     Active Substance: DEGARELIX
     Indication: PROSTATE CANCER
     Route: 058
     Dates: start: 20150105

REACTIONS (3)
  - Intentional product use issue [None]
  - Intentional product misuse [None]
  - Interstitial lung disease [None]

NARRATIVE: CASE EVENT DATE: 20150105
